FAERS Safety Report 9330638 (Version 1)
Quarter: 2013Q2

REPORT INFORMATION
  Report Type: Spontaneous
  Country: US (occurrence: None)
  Receive Date: 20130604
  Receipt Date: 20130604
  Transmission Date: 20140414
  Serious: Yes (Hospitalization)
  Sender: FDA-Public Use
  Company Number: None

PATIENT
  Age: 29 Year
  Sex: Female
  Weight: 81.65 kg

DRUGS (1)
  1. SPRINTEC [Suspect]
     Indication: CONTRACEPTION
     Dates: start: 20090909, end: 20091121

REACTIONS (1)
  - Pulmonary embolism [None]
